FAERS Safety Report 21021748 (Version 2)
Quarter: 2022Q3

REPORT INFORMATION
  Report Type: Spontaneous
  Country: LT (occurrence: LT)
  Receive Date: 20220629
  Receipt Date: 20220827
  Transmission Date: 20221027
  Serious: Yes (Hospitalization)
  Sender: FDA-Public Use
  Company Number: None

PATIENT
  Age: 50 Year
  Sex: Female
  Weight: 50 kg

DRUGS (7)
  1. CLONAZEPAM [Interacting]
     Active Substance: CLONAZEPAM
     Indication: Product used for unknown indication
     Dosage: 2MG, 10 UNITS
     Dates: start: 20220422, end: 20220422
  2. PREGABALIN [Interacting]
     Active Substance: PREGABALIN
     Indication: Product used for unknown indication
     Dosage: 75 MG, 9 UNITS
     Dates: start: 20220422, end: 20220422
  3. QUETIAPINE FUMARATE [Interacting]
     Active Substance: QUETIAPINE FUMARATE
     Indication: Product used for unknown indication
     Dosage: 200 MG, 7 UNITS
     Dates: start: 20220422, end: 20220422
  4. BISACODYL [Interacting]
     Active Substance: BISACODYL
     Indication: Product used for unknown indication
     Dosage: 15 UNITS, 5 MG
     Dates: start: 20220422, end: 20220422
  5. DIAZEPAM [Interacting]
     Active Substance: DIAZEPAM
     Indication: Insomnia
     Dosage: 27 TABLETS, 5MG
     Route: 048
     Dates: start: 20220422, end: 20220422
  6. ITOPRIDE HYDROCHLORIDE [Interacting]
     Active Substance: ITOPRIDE HYDROCHLORIDE
     Indication: Product used for unknown indication
     Dosage: 3 UNITS, 50 MG
     Dates: start: 20220422, end: 20220422
  7. METOPROLOL [Interacting]
     Active Substance: METOPROLOL
     Indication: Product used for unknown indication
     Dosage: 4 UNITS, 95MG
     Dates: start: 20220422, end: 20220422

REACTIONS (7)
  - Suicide attempt [Unknown]
  - Blood pressure decreased [Recovered/Resolved]
  - Intentional overdose [Unknown]
  - Medication error [Unknown]
  - Drug interaction [Unknown]
  - Sluggishness [Recovered/Resolved]
  - Alcohol interaction [Unknown]

NARRATIVE: CASE EVENT DATE: 20220422
